FAERS Safety Report 20638878 (Version 1)
Quarter: 2022Q1

REPORT INFORMATION
  Report Type: Report from Study
  Country: IL (occurrence: IL)
  Receive Date: 20220325
  Receipt Date: 20220325
  Transmission Date: 20220423
  Serious: Yes (Hospitalization, Other)
  Sender: FDA-Public Use
  Company Number: IL-TAKEDA-2022TUS019343

PATIENT
  Age: 76 Year
  Sex: Male

DRUGS (1)
  1. VELAGLUCERASE ALFA [Suspect]
     Active Substance: VELAGLUCERASE ALFA
     Indication: Gaucher^s disease
     Dosage: 15 INTERNATIONAL UNIT/KILOGRAM, Q2WEEKS
     Route: 065
     Dates: start: 201801

REACTIONS (1)
  - Post stroke seizure [Recovered/Resolved]

NARRATIVE: CASE EVENT DATE: 20220316
